FAERS Safety Report 15311086 (Version 1)
Quarter: 2018Q3

REPORT INFORMATION
  Report Type: Spontaneous
  Country: US (occurrence: US)
  Receive Date: 20180823
  Receipt Date: 20180823
  Transmission Date: 20181010
  Serious: Yes (Other)
  Sender: FDA-Public Use
  Company Number: PHEH2018US034167

PATIENT
  Sex: Female
  Weight: 123.8 kg

DRUGS (4)
  1. BOSULIF [Suspect]
     Active Substance: BOSUTINIB MONOHYDRATE
     Indication: CHRONIC LEUKAEMIA
     Dosage: 500 MG, QD
     Route: 048
     Dates: start: 20180716
  2. METOPROLOL. [Concomitant]
     Active Substance: METOPROLOL
     Indication: HYPERTENSION
     Dosage: 50 MG, QD
     Route: 065
  3. TASIGNA [Suspect]
     Active Substance: NILOTINIB
     Indication: CHRONIC MYELOID LEUKAEMIA
     Dosage: 150 MG, BID
     Route: 048
     Dates: start: 20151225, end: 20180617
  4. DOXAZOSIN [Concomitant]
     Active Substance: DOXAZOSIN\DOXAZOSIN MESYLATE
     Indication: PRODUCT USED FOR UNKNOWN INDICATION
     Dosage: 4 MG, QD (4 MG EXTENDED RELEASE)
     Route: 048

REACTIONS (8)
  - Follicular thyroid cancer [Unknown]
  - Stomatitis [Recovering/Resolving]
  - Aortic stenosis [Unknown]
  - Fluid retention [Unknown]
  - Ageusia [Not Recovered/Not Resolved]
  - Hypoaesthesia [Unknown]
  - Weight increased [Unknown]
  - Fatigue [Unknown]
